FAERS Safety Report 24310359 (Version 1)
Quarter: 2024Q3

REPORT INFORMATION
  Report Type: Spontaneous
  Country: US (occurrence: US)
  Receive Date: 20240912
  Receipt Date: 20240912
  Transmission Date: 20241017
  Serious: Yes (Other)
  Sender: JOHNSON AND JOHNSON
  Company Number: US-JNJFOC-20240921530

PATIENT
  Sex: Female

DRUGS (5)
  1. RISPERDAL [Suspect]
     Active Substance: RISPERIDONE
     Indication: Product used for unknown indication
     Route: 065
  2. INVEGA SUSTENNA [Suspect]
     Active Substance: PALIPERIDONE PALMITATE
     Indication: Product used for unknown indication
     Route: 065
  3. INVEGA SUSTENNA [Suspect]
     Active Substance: PALIPERIDONE PALMITATE
  4. INVEGA SUSTENNA [Suspect]
     Active Substance: PALIPERIDONE PALMITATE
  5. BUPROPION [Concomitant]
     Active Substance: BUPROPION

REACTIONS (11)
  - Cyst removal [Unknown]
  - Tardive dyskinesia [Unknown]
  - Lymphadenopathy [Unknown]
  - Night sweats [Unknown]
  - Bone pain [Unknown]
  - Mastitis [Unknown]
  - Hepatic steatosis [Unknown]
  - Blood cholesterol increased [Unknown]
  - Photophobia [Unknown]
  - Tinnitus [Unknown]
  - Tremor [Unknown]

NARRATIVE: CASE EVENT DATE: 20200101
